FAERS Safety Report 6282718-1 (Version None)
Quarter: 2009Q3

REPORT INFORMATION
  Report Type: 
  Country: None (occurrence: None)
  Receive Date: 20090724
  Receipt Date: 20090714
  Transmission Date: 20100115
  Serious: Yes (Other)
  Sender: FDA-Public Use
  Company Number: NL-ELI_LILLY_AND_COMPANY-NL200907002686

PATIENT
  Sex: Male
  Weight: 78 kg

DRUGS (2)
  1. ZYPREXA [Suspect]
     Indication: PSYCHOTIC DISORDER
     Dosage: 10 MG, DAILY (1/D)
     Dates: start: 19970206, end: 20000316
  2. GINKGO BILOBA [Concomitant]
     Dosage: 1 D/F, DAILY (1/D)
     Dates: start: 20090115

REACTIONS (5)
  - AGITATION [None]
  - HEADACHE [None]
  - INSOMNIA [None]
  - RESTLESSNESS [None]
  - TYPE 2 DIABETES MELLITUS [None]
